FAERS Safety Report 9630746 (Version 2)
Quarter: 2014Q1

REPORT INFORMATION
  Report Type: Spontaneous
  Country: US (occurrence: None)
  Receive Date: 20131015
  Receipt Date: 20140226
  Transmission Date: 20141002
  Serious: Yes (Other)
  Sender: FDA-Public Use
  Company Number: 2012-001687

PATIENT
  Age: 60 Year
  Sex: Female

DRUGS (10)
  1. ACTONEL [Suspect]
     Indication: OSTEOPOROSIS
     Route: 048
     Dates: start: 200203, end: 200204
  2. FOSAMAX (ALENDRONATE SODIUM) [Suspect]
     Indication: OSTEOPOROSIS
     Route: 048
     Dates: start: 200204
  3. ALENDRONATE (ALENDRONATE SODIUM) [Suspect]
     Indication: OSTEOPOROSIS
     Route: 048
     Dates: end: 200905
  4. LORAZEPAM (LORAZEPAM) [Suspect]
  5. PREVACID (LANSOPRAZOLE) [Concomitant]
  6. ADVAIR (FLUTICASONE PROPIONATE, SALMETEROL XINAFOATE) [Concomitant]
  7. COMBIVENT (IPRATROPIUM BROMIDE, SALBUTAMOL SULFATE) [Concomitant]
  8. ALLEGRA [Concomitant]
  9. SINGULAIR [Concomitant]
  10. AMITRIPTYLINE (AMITRIPTYLINE) [Concomitant]

REACTIONS (10)
  - Stress fracture [None]
  - Pain in extremity [None]
  - Muscular weakness [None]
  - Fracture nonunion [None]
  - Femur fracture [None]
  - Lumbar spinal stenosis [None]
  - Fall [None]
  - Dyspepsia [None]
  - Osteoarthritis [None]
  - Osteoarthritis [None]
